FAERS Safety Report 9440948 (Version 1)
Quarter: 2013Q3

REPORT INFORMATION
  Report Type: Spontaneous
  Country: US (occurrence: US)
  Receive Date: 20130801
  Receipt Date: 20130801
  Transmission Date: 20140515
  Serious: Yes (Other)
  Sender: FDA-Public Use
  Company Number: SYM-2013-07311

PATIENT
  Age: 89 Year
  Sex: Male

DRUGS (1)
  1. NORITATE [Suspect]
     Indication: ROSACEA
     Route: 048
     Dates: start: 2011, end: 201306

REACTIONS (2)
  - Neoplasm malignant [None]
  - Visual acuity reduced [None]
